FAERS Safety Report 5264865-6 (Version None)
Quarter: 2007Q1

REPORT INFORMATION
  Report Type: 
  Country: None (occurrence: None)
  Receive Date: 20070314
  Receipt Date: 20070301
  Transmission Date: 20070707
  Serious: Yes (Hospitalization)
  Sender: FDA-Public Use
  Company Number: FR-ELI_LILLY_AND_COMPANY-FR200611001524

PATIENT
  Age: 71 Year
  Sex: Female

DRUGS (5)
  1. FORTEO [Suspect]
     Indication: OSTEOPOROSIS
     Dosage: 20 UG, DAILY (1/D)
     Route: 058
     Dates: start: 20060321
  2. CORTANCYL [Concomitant]
     Indication: RHEUMATOID ARTHRITIS
     Dosage: 7 MG, DAILY (1/D)
     Route: 048
     Dates: start: 20010101
  3. METHOTREXATE [Concomitant]
     Indication: RHEUMATOID ARTHRITIS
     Dosage: 20 MG, WEEKLY (1/W)
     Route: 030
     Dates: start: 20010101
  4. SKENAN [Concomitant]
     Indication: SPINAL FRACTURE
     Dosage: 40 MG, 2/D
     Route: 048
     Dates: start: 20060901
  5. IDEOS [Concomitant]
     Route: 048
     Dates: start: 20040901

REACTIONS (1)
  - CEREBROVASCULAR ACCIDENT [None]
